FAERS Safety Report 11150098 (Version 4)
Quarter: 2018Q2

REPORT INFORMATION
  Report Type: Spontaneous
  Country: US (occurrence: US)
  Receive Date: 20150529
  Receipt Date: 20180510
  Transmission Date: 20180711
  Serious: Yes (Disabling, Other)
  Sender: FDA-Public Use
  Company Number: US-ENDO PHARMACEUTICALS INC.-2015-001109

PATIENT
  Age: 45 Year
  Sex: Male
  Weight: 81.63 kg

DRUGS (3)
  1. ANDROGEL [Suspect]
     Active Substance: TESTOSTERONE
     Indication: ANDROGEN REPLACEMENT THERAPY
     Dosage: UNK UNKNOWN, UNKNOWN
     Route: 065
     Dates: start: 201308, end: 201309
  2. TESTIM [Suspect]
     Active Substance: TESTOSTERONE
     Indication: ANDROGEN REPLACEMENT THERAPY
     Dosage: UNK UNKNOWN, UNKNOWN
     Route: 062
     Dates: start: 20120322, end: 201205
  3. TESTOSTERONE CYPIONATE. [Suspect]
     Active Substance: TESTOSTERONE CYPIONATE
     Indication: ANDROGEN REPLACEMENT THERAPY
     Dosage: UNK UNKNOWN, UNKNOWN
     Route: 065
     Dates: start: 20120221, end: 20121227

REACTIONS (6)
  - Transient ischaemic attack [Not Recovered/Not Resolved]
  - Pain [Unknown]
  - Cardiac failure [Not Recovered/Not Resolved]
  - Emotional distress [Unknown]
  - Transient ischaemic attack [Unknown]
  - Chest pain [Unknown]

NARRATIVE: CASE EVENT DATE: 20130911
